FAERS Safety Report 5857988-1 (Version None)
Quarter: 2008Q3

REPORT INFORMATION
  Report Type: 
  Country: None (occurrence: None)
  Receive Date: 20080826
  Receipt Date: 20080820
  Transmission Date: 20090109
  Serious: Yes (Hospitalization)
  Sender: FDA-Public Use
  Company Number: NL-AVENTIS-200817867GDDC

PATIENT
  Age: 65 Year
  Sex: Male
  Weight: 68 kg

DRUGS (2)
  1. ARAVA [Suspect]
     Indication: RHEUMATOID ARTHRITIS
     Route: 048
     Dates: start: 20070417, end: 20080716
  2. NEXIUM [Concomitant]
     Route: 048
     Dates: start: 20070417

REACTIONS (2)
  - CEREBROVASCULAR ACCIDENT [None]
  - GLOSSITIS [None]
